FAERS Safety Report 14277855 (Version 3)
Quarter: 2017Q4

REPORT INFORMATION
  Report Type: Spontaneous
  Country: US (occurrence: US)
  Receive Date: 20171212
  Receipt Date: 20171212
  Transmission Date: 20180321
  Serious: Yes (Other)
  Sender: FDA-Public Use
  Company Number: US-ELEFSEE PHARMACEUTICALS INTERNATIONAL-US-2017DEP002364

PATIENT
  Age: 65 Year

DRUGS (2)
  1. MIDAZOLAM [Suspect]
     Active Substance: MIDAZOLAM HYDROCHLORIDE
     Indication: SEDATION
     Dosage: 4 MG, UNK
     Route: 065
  2. FENTANYL. [Suspect]
     Active Substance: FENTANYL
     Indication: SEDATION
     Dosage: 100 ?G, UNK
     Route: 065

REACTIONS (1)
  - Oxygen saturation decreased [Unknown]
